FAERS Safety Report 14334269 (Version 2)
Quarter: 2017Q4

REPORT INFORMATION
  Report Type: Spontaneous
  Country: IT (occurrence: IT)
  Receive Date: 20171228
  Receipt Date: 20171229
  Transmission Date: 20180321
  Serious: Yes (Disabling)
  Sender: FDA-Public Use
  Company Number: IT-009507513-1712ITA013131

PATIENT
  Age: 58 Year
  Sex: Female

DRUGS (6)
  1. ADRONAT 70MG COMPRESSE [Suspect]
     Active Substance: ALENDRONATE SODIUM
     Indication: OSTEOPOROSIS
     Dosage: 70 MG, QW
     Route: 048
     Dates: start: 20150101, end: 20171128
  2. CARDIOASPIRIN [Concomitant]
     Active Substance: ASPIRIN
     Dosage: 1 DF, UNK
  3. NEBIVOLOL. [Concomitant]
     Active Substance: NEBIVOLOL
     Indication: HYPERTENSION
     Dosage: 1 DF, UNK
     Route: 048
     Dates: start: 20140101, end: 20171221
  4. TORVAST [Concomitant]
     Active Substance: ATORVASTATIN
     Dosage: 1 DF, UNK
     Dates: start: 20120101, end: 20171221
  5. REPAGLINIDE. [Concomitant]
     Active Substance: REPAGLINIDE
     Indication: DIABETES MELLITUS
     Dosage: 1 DF, UNK
     Route: 048
     Dates: start: 20160601, end: 20171221
  6. METFORMIN [Concomitant]
     Active Substance: METFORMIN HYDROCHLORIDE
     Indication: DIABETES MELLITUS
     Dosage: 2200 MG, UNK
     Route: 048
     Dates: start: 20070101, end: 20171221

REACTIONS (4)
  - Fistula [Not Recovered/Not Resolved]
  - Pain [Not Recovered/Not Resolved]
  - Osteonecrosis of jaw [Not Recovered/Not Resolved]
  - Oral dysaesthesia [Not Recovered/Not Resolved]

NARRATIVE: CASE EVENT DATE: 20170803
